FAERS Safety Report 21364102 (Version 6)
Quarter: 2025Q3

REPORT INFORMATION
  Report Type: Spontaneous
  Country: CA (occurrence: CA)
  Receive Date: 20220922
  Receipt Date: 20250828
  Transmission Date: 20251020
  Serious: Yes (Life-Threatening, Hospitalization, Other)
  Sender: MYLAN
  Company Number: CA-PFIZER INC-202201177029

PATIENT
  Age: 53 Year
  Sex: Female

DRUGS (11)
  1. ALPRAZOLAM [Suspect]
     Active Substance: ALPRAZOLAM
     Indication: Product used for unknown indication
  2. ALPRAZOLAM [Suspect]
     Active Substance: ALPRAZOLAM
  3. QUETIAPINE [Suspect]
     Active Substance: QUETIAPINE
     Indication: Product used for unknown indication
  4. LORAZEPAM [Suspect]
     Active Substance: LORAZEPAM
     Indication: Product used for unknown indication
  5. LORAZEPAM [Suspect]
     Active Substance: LORAZEPAM
  6. CLONAZEPAM [Suspect]
     Active Substance: CLONAZEPAM
     Indication: Product used for unknown indication
  7. CLONAZEPAM [Suspect]
     Active Substance: CLONAZEPAM
  8. DEXTROMETHORPHAN [Suspect]
     Active Substance: DEXTROMETHORPHAN
     Indication: Product used for unknown indication
  9. ZOPICLONE [Suspect]
     Active Substance: ZOPICLONE
     Indication: Product used for unknown indication
  10. ZOPICLONE [Suspect]
     Active Substance: ZOPICLONE
  11. QUETIAPINE FUMARATE [Suspect]
     Active Substance: QUETIAPINE FUMARATE
     Indication: Product used for unknown indication

REACTIONS (7)
  - Blood pressure decreased [Recovered/Resolved]
  - Toxicity to various agents [Recovered/Resolved]
  - Sinus tachycardia [Recovered/Resolved]
  - Depressed level of consciousness [Recovered/Resolved]
  - Loss of consciousness [Recovered/Resolved]
  - Respiratory rate decreased [Recovered/Resolved]
  - Intentional overdose [Recovered/Resolved]
